FAERS Safety Report 8355810-5 (Version None)
Quarter: 2012Q2

REPORT INFORMATION
  Report Type: 
  Country: None (occurrence: None)
  Receive Date: 20120514
  Receipt Date: 20120507
  Transmission Date: 20120825
  Serious: No
  Sender: FDA-Public Use
  Company Number: US-PFIZER INC-2012014668

PATIENT
  Sex: Male
  Weight: 19.501 kg

DRUGS (3)
  1. CHILDREN'S ADVIL [Suspect]
     Indication: PYREXIA
  2. CHILDREN'S ADVIL [Suspect]
     Indication: VIRAL INFECTION
     Dosage: 200 MG, 3X/DAY
     Route: 048
     Dates: start: 20111229, end: 20120103
  3. CHILDREN'S ADVIL [Suspect]
     Indication: OROPHARYNGEAL PAIN

REACTIONS (1)
  - DRUG INEFFECTIVE [None]
